FAERS Safety Report 23140316 (Version 1)
Quarter: 2023Q4

REPORT INFORMATION
  Report Type: Spontaneous
  Country: US (occurrence: US)
  Receive Date: 20231102
  Receipt Date: 20231102
  Transmission Date: 20240110
  Serious: Yes (Other)
  Sender: FDA-Public Use
  Company Number: US-SANDOZ-SDZ2023US049356

PATIENT
  Sex: Female

DRUGS (1)
  1. LATANOPROST [Suspect]
     Active Substance: LATANOPROST
     Indication: Product used for unknown indication
     Dosage: 0.005 %, QD
     Route: 065

REACTIONS (4)
  - Ocular hypertension [Unknown]
  - Ocular discomfort [Unknown]
  - Headache [Unknown]
  - Migraine [Unknown]
